FAERS Safety Report 11494809 (Version 1)
Quarter: 2015Q3

REPORT INFORMATION
  Report Type: Spontaneous
  Country: US (occurrence: US)
  Receive Date: 20150911
  Receipt Date: 20150911
  Transmission Date: 20151125
  Serious: No
  Sender: FDA-Public Use
  Company Number: US-ROCHE-1046616

PATIENT
  Sex: Male

DRUGS (3)
  1. COPEGUS [Suspect]
     Active Substance: RIBAVIRIN
     Indication: HEPATITIS C
     Route: 048
     Dates: start: 20111119
  2. INCIVEK [Suspect]
     Active Substance: TELAPREVIR
     Indication: HEPATITIS C
     Route: 065
     Dates: start: 20111119, end: 20120210
  3. PEGASYS [Suspect]
     Active Substance: PEGINTERFERON ALFA-2A
     Indication: HEPATITIS C
     Route: 058
     Dates: start: 20111119

REACTIONS (8)
  - White blood cell count decreased [Unknown]
  - Weight decreased [Unknown]
  - Pruritus generalised [Unknown]
  - Fatigue [Unknown]
  - Skin exfoliation [Unknown]
  - Haemoglobin decreased [Unknown]
  - Rash erythematous [Unknown]
  - Platelet count decreased [Unknown]
